FAERS Safety Report 8926297 (Version 1)
Quarter: 2012Q4

REPORT INFORMATION
  Report Type: 
  Country: MX (occurrence: MX)
  Receive Date: 20121126
  Receipt Date: 20121126
  Transmission Date: 20130627
  Serious: Yes (Other)
  Sender: FDA-Public Use
  Company Number: PHHY2012MX096085

PATIENT
  Age: 12 Year
  Sex: Male

DRUGS (2)
  1. SANDIMMUN NEORAL [Suspect]
     Indication: NEPHROTIC SYNDROME
     Dosage: 2 DF, Daily
     Route: 048
     Dates: start: 200612
  2. PREDNISONE [Concomitant]
     Indication: RENAL IMPAIRMENT
     Dates: start: 201002

REACTIONS (4)
  - Stress [Not Recovered/Not Resolved]
  - Abnormal behaviour [Not Recovered/Not Resolved]
  - Hallucination, auditory [Not Recovered/Not Resolved]
  - Blood uric acid increased [Unknown]
